FAERS Safety Report 4838584-1 (Version None)
Quarter: 2005Q4

REPORT INFORMATION
  Report Type: 
  Country: None (occurrence: None)
  Receive Date: 20051123
  Receipt Date: 20051123
  Transmission Date: 20060501
  Serious: Yes (Other)
  Sender: FDA-Public Use
  Company Number: None

PATIENT
  Age: 58 Year
  Sex: Male
  Weight: 92.9 kg

DRUGS (9)
  1. DOCETAXEL [Suspect]
     Indication: NEOPLASM MALIGNANT
     Dosage: 175MG, 175MG ON, IV PIGGY
     Route: 042
  2. NILUTAMIDE [Concomitant]
  3. FENTANYL [Concomitant]
  4. OXYCODONE HCL [Concomitant]
  5. PROCHLORPERAZINE MALEATE [Concomitant]
  6. KETOCONAZOLE [Concomitant]
  7. RANITIDINE HCL [Concomitant]
  8. HYDROCORTISONE [Concomitant]
  9. GOSERELIN [Concomitant]

REACTIONS (2)
  - PRURITUS [None]
  - RASH [None]
